FAERS Safety Report 9353142 (Version 5)
Quarter: 2013Q3

REPORT INFORMATION
  Report Type: Spontaneous
  Country: CA (occurrence: CA)
  Receive Date: 20130618
  Receipt Date: 20130801
  Transmission Date: 20140515
  Serious: Yes (Death, Hospitalization, Other)
  Sender: FDA-Public Use
  Company Number: CA-ROCHE-1236621

PATIENT
  Sex: Male

DRUGS (9)
  1. XOLAIR [Suspect]
     Indication: ASTHMA
     Route: 058
     Dates: start: 20111020
  2. XOLAIR [Suspect]
     Dosage: BIW
     Route: 058
     Dates: start: 20130613
  3. XOLAIR [Suspect]
     Route: 058
  4. SALBUTAMOL [Concomitant]
     Route: 065
  5. ALVESCO [Concomitant]
     Route: 065
  6. SEREVENT [Concomitant]
     Route: 065
  7. SINGULAIR [Concomitant]
     Route: 065
  8. RAMIPRIL [Concomitant]
     Route: 065
  9. HYDROCHLOROTHIAZIDE [Concomitant]
     Route: 065

REACTIONS (23)
  - Hepatic cancer [Unknown]
  - Pancreatic carcinoma [Unknown]
  - Renal failure [Unknown]
  - Sleep apnoea syndrome [Unknown]
  - Gastrooesophageal reflux disease [Recovering/Resolving]
  - Gastroenteritis viral [Recovered/Resolved]
  - Blood cholesterol increased [Unknown]
  - Rhinorrhoea [Unknown]
  - Dysphonia [Unknown]
  - Influenza like illness [Recovered/Resolved]
  - Headache [Unknown]
  - Fatigue [Unknown]
  - Cough [Unknown]
  - Blood pressure increased [Unknown]
  - Decreased appetite [Unknown]
  - Abdominal discomfort [Not Recovered/Not Resolved]
  - Asthenia [Unknown]
  - Weight decreased [Not Recovered/Not Resolved]
  - Respiratory rate increased [Unknown]
  - Discomfort [Unknown]
  - Pallor [Unknown]
  - Laryngitis [Unknown]
  - Death [Fatal]
